FAERS Safety Report 7866890-5 (Version None)
Quarter: 2011Q4

REPORT INFORMATION
  Report Type: 
  Country: None (occurrence: None)
  Receive Date: 20111028
  Receipt Date: 20111020
  Transmission Date: 20120403
  Serious: No
  Sender: FDA-Public Use
  Company Number: US-B.I. PHARMACEUTICALS,INC./RIDGEFIELD-2011-BP-22509BP

PATIENT
  Sex: Male
  Weight: 107.5 kg

DRUGS (8)
  1. ZOCOR [Concomitant]
     Indication: CORONARY ARTERY DISEASE
     Dosage: 40 MG
     Route: 048
  2. POTASSIUM CHLORIDE [Concomitant]
     Indication: CORONARY ARTERY DISEASE
     Dosage: 10 MEQ
     Route: 048
  3. ISOSORBIDE DINITRATE [Concomitant]
     Indication: CORONARY ARTERY DISEASE
     Route: 048
  4. PAXIL [Concomitant]
     Dosage: 20 MG
     Route: 048
  5. COREG [Concomitant]
     Indication: CORONARY ARTERY DISEASE
     Dosage: 6.25 MG
     Route: 048
  6. ASPIRIN [Concomitant]
     Indication: CORONARY ARTERY DISEASE
     Dosage: 325 MG
     Route: 048
  7. SPIRIVA [Suspect]
     Indication: CHRONIC OBSTRUCTIVE PULMONARY DISEASE
     Dosage: 18 MCG
     Route: 055
     Dates: start: 20100712, end: 20110917
  8. LASIX [Concomitant]
     Indication: CORONARY ARTERY DISEASE
     Dosage: 20 MG
     Route: 048

REACTIONS (5)
  - EYE IRRITATION [None]
  - DRY MOUTH [None]
  - RASH [None]
  - FUNGAL INFECTION [None]
  - DYSPHONIA [None]
